APPROVED DRUG PRODUCT: LARODOPA
Active Ingredient: LEVODOPA
Strength: 100MG
Dosage Form/Route: TABLET;ORAL
Application: N016912 | Product #005
Applicant: HOFFMANN LA ROCHE INC
Approved: Approved Prior to Jan 1, 1982 | RLD: No | RS: No | Type: DISCN